FAERS Safety Report 5892173-9 (Version None)
Quarter: 2008Q3

REPORT INFORMATION
  Report Type: 
  Country: None (occurrence: None)
  Receive Date: 20080908
  Receipt Date: 20080610
  Transmission Date: 20090109
  Serious: No
  Sender: FDA-Public Use
  Company Number: 002#2#2008-00494

PATIENT
  Age: 55 Year
  Sex: Male
  Weight: 104.3273 kg

DRUGS (6)
  1. NEUPRO [Suspect]
     Indication: PARKINSON'S DISEASE
     Dosage: 8MG/24H, 1 IN 1 D, TRANSDERMAL
     Route: 062
     Dates: start: 20060101, end: 20080531
  2. STALEVO 100 [Suspect]
     Indication: PARKINSON'S DISEASE
     Dosage: 50 MG
     Dates: start: 20080601, end: 20080608
  3. STALEVO 100 [Concomitant]
  4. EMSAME [Concomitant]
  5. LUNESTA [Concomitant]
  6. DETROL LA [Concomitant]

REACTIONS (4)
  - DRUG ADMINISTRATION ERROR [None]
  - LOSS OF CONSCIOUSNESS [None]
  - NAUSEA [None]
  - OVERDOSE [None]
